FAERS Safety Report 9433145 (Version 1)
Quarter: 2013Q3

REPORT INFORMATION
  Report Type: Spontaneous
  Country: US (occurrence: US)
  Receive Date: 20130731
  Receipt Date: 20130731
  Transmission Date: 20140515
  Serious: Yes (Other)
  Sender: FDA-Public Use
  Company Number: US-GLAXOSMITHKLINE-A1034390A

PATIENT
  Age: 56 Year
  Sex: Male

DRUGS (2)
  1. ADVAIR [Suspect]
     Indication: ASTHMA
     Dosage: 1PUFF PER DAY
     Route: 055
  2. LEVOTHYROXINE [Concomitant]

REACTIONS (3)
  - Paralysis [Recovering/Resolving]
  - Nephrolithiasis [Not Recovered/Not Resolved]
  - Underdose [Unknown]
